FAERS Safety Report 20712696 (Version 2)
Quarter: 2022Q2

REPORT INFORMATION
  Report Type: Spontaneous
  Country: US (occurrence: US)
  Receive Date: 20220415
  Receipt Date: 20220508
  Transmission Date: 20220721
  Serious: Yes (Other)
  Sender: FDA-Public Use
  Company Number: US-BEH-2022144074

PATIENT
  Sex: Male

DRUGS (4)
  1. IDELVION [Suspect]
     Active Substance: COAGULATION FACTOR IX RECOMBINANT HUMAN
     Indication: Factor IX deficiency
     Dosage: 2303 INTERNATIONAL UNIT, QW (2040 AND 263 IU)
     Route: 042
     Dates: start: 202202
  2. IDELVION [Suspect]
     Active Substance: COAGULATION FACTOR IX RECOMBINANT HUMAN
     Indication: Factor IX deficiency
     Dosage: 2303 INTERNATIONAL UNIT, QW (2040 AND 263 IU)
     Route: 042
     Dates: start: 202202
  3. IDELVION [Suspect]
     Active Substance: COAGULATION FACTOR IX RECOMBINANT HUMAN
     Dosage: UNK UNK, PRN
     Route: 042
     Dates: start: 202202
  4. IDELVION [Suspect]
     Active Substance: COAGULATION FACTOR IX RECOMBINANT HUMAN
     Dosage: UNK UNK, PRN
     Route: 042
     Dates: start: 202202

REACTIONS (1)
  - Haemarthrosis [Unknown]
